FAERS Safety Report 15589018 (Version 1)
Quarter: 2018Q4

REPORT INFORMATION
  Report Type: Spontaneous
  Country: FR (occurrence: FR)
  Receive Date: 20181106
  Receipt Date: 20181106
  Transmission Date: 20190205
  Serious: Yes (Hospitalization)
  Sender: FDA-Public Use
  Company Number: FR-SUN PHARMACEUTICAL INDUSTRIES LTD-2018RR-190357

PATIENT
  Age: 50 Year
  Sex: Male

DRUGS (9)
  1. TERCIAN [Interacting]
     Active Substance: CYAMEMAZINE
     Dosage: STRENGTH: 25 MG
     Route: 048
     Dates: end: 20120522
  2. LEPTICUR [Concomitant]
     Active Substance: TROPATEPINE HYDROCHLORIDE
     Indication: PRODUCT USED FOR UNKNOWN INDICATION
     Route: 065
     Dates: start: 20120525
  3. RISPERDAL [Concomitant]
     Active Substance: RISPERIDONE
     Indication: PRODUCT USED FOR UNKNOWN INDICATION
     Dosage: 4 MG, DAILY
     Route: 048
     Dates: end: 20120515
  4. QUETIAPINE. [Suspect]
     Active Substance: QUETIAPINE
     Indication: PRODUCT USED FOR UNKNOWN INDICATION
     Dosage: STRENGTH: 300 MG ; IN TOTAL
     Route: 048
     Dates: start: 20120524, end: 20120524
  5. QUETIAPINE. [Interacting]
     Active Substance: QUETIAPINE
     Dosage: STRENGTH: 300 MG
     Route: 048
     Dates: start: 20120525
  6. GLIMEPIRIDE. [Concomitant]
     Active Substance: GLIMEPIRIDE
     Indication: PRODUCT USED FOR UNKNOWN INDICATION
     Dosage: STRENGTH: 2MG
     Route: 048
  7. TERCIAN [Interacting]
     Active Substance: CYAMEMAZINE
     Indication: PRODUCT USED FOR UNKNOWN INDICATION
     Dosage: STRENGTH: 25 MG
     Route: 048
     Dates: start: 20120523, end: 20120531
  8. ABILIFY [Concomitant]
     Active Substance: ARIPIPRAZOLE
     Indication: PRODUCT USED FOR UNKNOWN INDICATION
     Dosage: STRENGTH: 15MG ()
     Route: 065
     Dates: start: 20120521, end: 20120523
  9. EFFEXOR [Concomitant]
     Active Substance: VENLAFAXINE HYDROCHLORIDE
     Indication: PRODUCT USED FOR UNKNOWN INDICATION
     Dosage: ()
     Route: 065
     Dates: start: 20120521, end: 20120522

REACTIONS (4)
  - Drug interaction [Recovered/Resolved]
  - Catatonia [Recovering/Resolving]
  - Urinary retention [Recovered/Resolved]
  - Blood creatine phosphokinase increased [Recovered/Resolved]

NARRATIVE: CASE EVENT DATE: 20120526
